FAERS Safety Report 23702527 (Version 1)
Quarter: 2024Q2

REPORT INFORMATION
  Report Type: Spontaneous
  Country: US (occurrence: None)
  Receive Date: 20240403
  Receipt Date: 20240403
  Transmission Date: 20240716
  Serious: Yes (unspecified)
  Sender: FDA-Public Use
  Company Number: None

PATIENT
  Age: 19 Year
  Sex: Male

DRUGS (2)
  1. CANNABIDIOL\HERBALS [Suspect]
     Active Substance: CANNABIDIOL\HERBALS
  2. DEVICE [Suspect]
     Active Substance: DEVICE

REACTIONS (8)
  - Overdose [None]
  - Unresponsive to stimuli [None]
  - Substance use [None]
  - Confusional state [None]
  - Incoherent [None]
  - Refusal of treatment by patient [None]
  - Urinary incontinence [None]
  - Gait disturbance [None]

NARRATIVE: CASE EVENT DATE: 20240324
